FAERS Safety Report 4437277-2 (Version None)
Quarter: 2004Q3

REPORT INFORMATION
  Report Type: 
  Country: None (occurrence: None)
  Receive Date: 20040726
  Receipt Date: 20040329
  Transmission Date: 20050211
  Serious: No
  Sender: FDA-Public Use
  Company Number: USA040363349

PATIENT
  Age: 79 Year
  Sex: Female
  Weight: 52 kg

DRUGS (1)
  1. FORTEO [Suspect]
     Indication: OSTEOPOROSIS
     Dosage: 20 UG/1 DAY
     Dates: start: 20040216, end: 20040325

REACTIONS (3)
  - ERYTHEMA [None]
  - RASH PRURITIC [None]
  - SKIN WRINKLING [None]
